FAERS Safety Report 14829747 (Version 1)
Quarter: 2018Q2

REPORT INFORMATION
  Report Type: Spontaneous
  Country: FR (occurrence: FR)
  Receive Date: 20180430
  Receipt Date: 20180430
  Transmission Date: 20180711
  Serious: Yes (Other)
  Sender: FDA-Public Use
  Company Number: FR-BAYER-2018-077167

PATIENT
  Age: 51 Year
  Sex: Male

DRUGS (2)
  1. STIVARGA [Suspect]
     Active Substance: REGORAFENIB
     Indication: COLON CANCER
     Dosage: 120 MG, QD
     Dates: start: 201512
  2. STIVARGA [Suspect]
     Active Substance: REGORAFENIB
     Indication: COLON CANCER
     Dosage: UNK

REACTIONS (10)
  - Asthenia [None]
  - Drug intolerance [None]
  - Dysphonia [None]
  - Weight decreased [None]
  - Colon cancer metastatic [None]
  - Prostatic disorder [None]
  - Pelvic pain [None]
  - Micturition disorder [None]
  - Diarrhoea [None]
  - Off label use [None]
